FAERS Safety Report 8511193-9 (Version None)
Quarter: 2012Q3

REPORT INFORMATION
  Report Type: 
  Country: None (occurrence: None)
  Receive Date: 20120716
  Receipt Date: 20120703
  Transmission Date: 20120928
  Serious: Yes (Hospitalization)
  Sender: FDA-Public Use
  Company Number: DE-CELGENEUS-062-50794-12050656

PATIENT
  Age: 76 Year
  Sex: Male
  Weight: 72 kg

DRUGS (7)
  1. DEFERASIROX [Suspect]
     Indication: IRON OVERLOAD
     Route: 065
     Dates: start: 20110901
  2. RAMIPRIL [Suspect]
     Route: 065
  3. SIMVASTATIN [Suspect]
     Route: 065
  4. METOPROLOL TARTRATE [Suspect]
     Route: 065
  5. TORSEMIDE [Suspect]
     Route: 065
  6. ASPIRIN [Suspect]
     Route: 065
  7. VIDAZA [Suspect]
     Dosage: 140MG
     Route: 041
     Dates: start: 20100901, end: 20120418

REACTIONS (1)
  - LEUKOCYTOCLASTIC VASCULITIS [None]
